FAERS Safety Report 20156330 (Version 1)
Quarter: 2021Q4

REPORT INFORMATION
  Report Type: Spontaneous
  Country: AU (occurrence: AU)
  Receive Date: 20211207
  Receipt Date: 20211207
  Transmission Date: 20220303
  Serious: Yes (Death, Hospitalization)
  Sender: FDA-Public Use
  Company Number: AU-MYLANLABS-2021M1079317

PATIENT
  Sex: Female

DRUGS (1)
  1. OGIVRI [Suspect]
     Active Substance: TRASTUZUMAB-DKST
     Indication: HER2 positive salivary gland cancer
     Dosage: 8MG/KG Q3W LOADING THEN 6MG/KG Q3W

REACTIONS (3)
  - Disease progression [Fatal]
  - Lower respiratory tract infection [Fatal]
  - Off label use [Unknown]
